FAERS Safety Report 13528333 (Version 1)
Quarter: 2017Q2

REPORT INFORMATION
  Report Type: Spontaneous
  Country: DE (occurrence: DE)
  Receive Date: 20170509
  Receipt Date: 20170509
  Transmission Date: 20170830
  Serious: Yes (Other)
  Sender: FDA-Public Use
  Company Number: DE-AMGEN-DEUSP2017067560

PATIENT
  Age: 81 Year
  Sex: Female

DRUGS (1)
  1. PROLIA [Suspect]
     Active Substance: DENOSUMAB
     Indication: OSTEOPOROSIS
     Dosage: UNK
     Route: 065
     Dates: start: 2014

REACTIONS (7)
  - Neuritis [Unknown]
  - Jaw disorder [Unknown]
  - Gingival pain [Unknown]
  - Upper limb fracture [Unknown]
  - Loose tooth [Unknown]
  - Fall [Unknown]
  - Tooth disorder [Unknown]

NARRATIVE: CASE EVENT DATE: 2015
